FAERS Safety Report 7982261-5 (Version None)
Quarter: 2011Q4

REPORT INFORMATION
  Report Type: 
  Country: None (occurrence: None)
  Receive Date: 20111215
  Receipt Date: 20111215
  Transmission Date: 20120403
  Serious: No
  Sender: FDA-Public Use
  Company Number: None

PATIENT
  Age: 43 Year
  Sex: Female

DRUGS (1)
  1. COPAXONE [Suspect]
     Indication: MULTIPLE SCLEROSIS
     Dosage: 20MG
     Route: 058
     Dates: start: 20110413, end: 20111214

REACTIONS (3)
  - PRODUCT DEPOSIT [None]
  - PAIN [None]
  - INJECTION SITE REACTION [None]
